FAERS Safety Report 5458146-5 (Version None)
Quarter: 2007Q3

REPORT INFORMATION
  Report Type: 
  Country: None (occurrence: None)
  Receive Date: 20070917
  Receipt Date: 20060501
  Transmission Date: 20080115
  Serious: Yes (Hospitalization, Disabling)
  Sender: FDA-Public Use
  Company Number: 000#5#2006-00204

PATIENT
  Age: 51 Year
  Sex: Male

DRUGS (14)
  1. ROTIGOTINE (DOSE UNKNOWN), PATCH (SILICONE) (ROTIGOTINE) [Suspect]
     Indication: PARKINSON'S DISEASE
     Dosage: TRANSDERMAL
     Route: 062
     Dates: start: 20050112
  2. ACETAMINOPHEN [Concomitant]
  3. DOMPERIDONE (DOMPERIDONE) [Concomitant]
  4. MELOXICAM [Concomitant]
  5. CARBIDOPA, LEVODOPA (CARBIDOPA, LEVODOPA) [Concomitant]
  6. VALPROATE SODIUM [Concomitant]
  7. CITALOPRAM YDROBROMIDE (CITALOPRAM HYDROBROMIDE) [Concomitant]
  8. OMEPRAZOLE MAGNESIUM (OMEPRAZOLE MAGNESIUM) [Concomitant]
  9. LEVODOPA BENSERAZIDE HYDROCHLO (BENSERAZIDE HYDROCHLORIDE, LEVODOPA) [Concomitant]
  10. ENTACAPONE (ENTACAPONE) [Concomitant]
  11. SILDENAFIL CITRATE [Concomitant]
  12. OMEPRAZOLE [Concomitant]
  13. PAROXETINE HCL [Concomitant]
  14. TEMAZEPAM [Concomitant]

REACTIONS (9)
  - ABNORMAL BEHAVIOUR [None]
  - DEPRESSION [None]
  - HYPERPHAGIA [None]
  - HYPERSEXUALITY [None]
  - OBSESSIVE-COMPULSIVE DISORDER [None]
  - PATHOLOGICAL GAMBLING [None]
  - SUICIDAL IDEATION [None]
  - TENDON RUPTURE [None]
  - TREATMENT NONCOMPLIANCE [None]
